FAERS Safety Report 25120845 (Version 1)
Quarter: 2025Q1

REPORT INFORMATION
  Report Type: Report from Study
  Country: CO (occurrence: CO)
  Receive Date: 20250325
  Receipt Date: 20250325
  Transmission Date: 20250409
  Serious: Yes (Hospitalization, Other)
  Sender: ABBVIE
  Company Number: CO-JNJFOC-20250248395

PATIENT
  Age: 47 Year
  Sex: Male
  Weight: 75 kg

DRUGS (1)
  1. IMBRUVICA [Suspect]
     Active Substance: IBRUTINIB
     Indication: Mantle cell lymphoma
     Dosage: LAST ADMIN DATE 2025
     Route: 048
     Dates: start: 20250116

REACTIONS (6)
  - Mantle cell lymphoma [Unknown]
  - Thinking abnormal [Unknown]
  - Memory impairment [Not Recovered/Not Resolved]
  - Crying [Not Recovered/Not Resolved]
  - Amnesia [Not Recovered/Not Resolved]
  - Vital functions abnormal [Unknown]

NARRATIVE: CASE EVENT DATE: 20250201
